FAERS Safety Report 11148761 (Version 1)
Quarter: 2015Q2

REPORT INFORMATION
  Report Type: Spontaneous
  Country: US (occurrence: None)
  Receive Date: 20150527
  Receipt Date: 20150527
  Transmission Date: 20150821
  Serious: Yes (Other)
  Sender: FDA-Public Use
  Company Number: ADE15-039

PATIENT
  Age: 51 Year
  Sex: Male
  Weight: 68.04 kg

DRUGS (1)
  1. HEPARIN SODIUM. [Suspect]
     Active Substance: HEPARIN SODIUM
     Indication: PERCUTANEOUS CORONARY INTERVENTION
     Dosage: 15,000 U TOTAL DOSE IA
     Route: 014
     Dates: start: 20150521, end: 20150521

REACTIONS (2)
  - Coagulation time prolonged [None]
  - Drug effect decreased [None]

NARRATIVE: CASE EVENT DATE: 20150521
